FAERS Safety Report 14081216 (Version 1)
Quarter: 2017Q4

REPORT INFORMATION
  Report Type: Spontaneous
  Country: US (occurrence: None)
  Receive Date: 20171012
  Receipt Date: 20171012
  Transmission Date: 20180321
  Serious: No
  Sender: FDA-Public Use
  Company Number: None

PATIENT
  Age: 74 Year
  Sex: Female

DRUGS (1)
  1. PROLIA [Suspect]
     Active Substance: DENOSUMAB
     Dosage: 60MG Q 6 MONTHS SUBQ
     Route: 058

REACTIONS (4)
  - Skin atrophy [None]
  - Dry skin [None]
  - Arthralgia [None]
  - Madarosis [None]

NARRATIVE: CASE EVENT DATE: 20171012
